FAERS Safety Report 4683026-2 (Version None)
Quarter: 2005Q2

REPORT INFORMATION
  Report Type: 
  Country: None (occurrence: None)
  Receive Date: 20050606
  Receipt Date: 20050310
  Transmission Date: 20051028
  Serious: Yes (Hospitalization)
  Sender: FDA-Public Use
  Company Number: US-MERCK-0503USA01906

PATIENT
  Age: 48 Year
  Sex: Male
  Weight: 75 kg

DRUGS (6)
  1. VIOXX [Suspect]
     Indication: NECK PAIN
     Route: 048
     Dates: start: 20030620, end: 20040401
  2. VIOXX [Suspect]
     Route: 048
     Dates: start: 20030620, end: 20040401
  3. VIOXX [Suspect]
     Indication: SHOULDER PAIN
     Route: 048
     Dates: start: 20030620, end: 20040401
  4. VIOXX [Suspect]
     Route: 048
     Dates: start: 20030620, end: 20040401
  5. HYDROCODONE BITARTRATE [Concomitant]
     Route: 065
  6. IBUPROFEN [Concomitant]
     Route: 065

REACTIONS (10)
  - CHEST DISCOMFORT [None]
  - CHEST PAIN [None]
  - DISORIENTATION [None]
  - ELECTROCARDIOGRAM ABNORMAL [None]
  - ELECTROCARDIOGRAM T WAVE ABNORMAL [None]
  - EMOTIONAL DISTRESS [None]
  - HYPERTENSION [None]
  - MYOCARDIAL INFARCTION [None]
  - MYOCARDIAL ISCHAEMIA [None]
  - SINUS BRADYCARDIA [None]
